FAERS Safety Report 26151270 (Version 1)
Quarter: 2025Q4

REPORT INFORMATION
  Report Type: Spontaneous
  Country: EU (occurrence: EU)
  Receive Date: 20251212
  Receipt Date: 20251212
  Transmission Date: 20260117
  Serious: Yes (Other)
  Sender: PFIZER
  Company Number: None

PATIENT
  Age: 66 Year
  Sex: Female
  Weight: 59 kg

DRUGS (9)
  1. LINEZOLID [Suspect]
     Active Substance: LINEZOLID
     Indication: Infection
     Dosage: FREQ:12 H;TDM LINEZOLID PERSISTENTEMENTE SOVRADOSATA
     Route: 048
     Dates: start: 20251114, end: 20251117
  2. ERTAPENEM [Suspect]
     Active Substance: ERTAPENEM
     Indication: Infection
     Dosage: 1 G, 1X/DAY
     Route: 042
     Dates: start: 20251030, end: 20251118
  3. PARACETAMOLO GALENICA SENESE [Concomitant]
     Indication: Pain
     Dosage: IN CORSO AL BISOGNO
     Route: 042
     Dates: start: 20251121
  4. ENOXAPARIN SODIUM [Concomitant]
     Active Substance: ENOXAPARIN SODIUM
     Indication: Thrombosis prophylaxis
     Dosage: IN CORSO
     Route: 058
  5. FUROSEMIDE [Concomitant]
     Active Substance: FUROSEMIDE
     Dosage: 25 MG
     Route: 048
     Dates: start: 20251027, end: 20251114
  6. PANTOPRAZOL SODICO SESQUI HIDRATADO [Concomitant]
     Dosage: IN CORSO
     Route: 048
  7. CALCIO FOLINATO [Concomitant]
     Dosage: IN CORSO
     Route: 048
     Dates: start: 20251024
  8. BISOPROLOL FUMARATE [Concomitant]
     Active Substance: BISOPROLOL FUMARATE
     Dosage: IN CORSO
     Route: 048
  9. AMLODIPINE [Concomitant]
     Active Substance: AMLODIPINE BESYLATE
     Indication: Hypertension
     Dosage: 5 MG, 1X/DAY
     Route: 048

REACTIONS (3)
  - Hallucination, visual [Recovered/Resolved]
  - Delirium [Recovered/Resolved]
  - Psychomotor hyperactivity [Recovered/Resolved]

NARRATIVE: CASE EVENT DATE: 20251117
